FAERS Safety Report 5854849-9 (Version None)
Quarter: 2008Q3

REPORT INFORMATION
  Report Type: 
  Country: None (occurrence: None)
  Receive Date: 20080822
  Receipt Date: 20080812
  Transmission Date: 20090109
  Serious: Yes (Hospitalization)
  Sender: FDA-Public Use
  Company Number: FR-PFIZER INC-2008068085

PATIENT
  Sex: Male

DRUGS (9)
  1. ACUITEL [Suspect]
     Indication: HYPERTENSION
     Dosage: DAILY DOSE:5MG-FREQ:DAILY
     Route: 048
  2. HEMI-DAONIL [Suspect]
     Indication: DIABETES MELLITUS
     Route: 048
  3. PRAZOSIN HCL [Concomitant]
  4. DILTIAZEM HCL [Concomitant]
  5. BUFLOMEDIL [Concomitant]
  6. ASPIRIN [Concomitant]
  7. PLAVIX [Concomitant]
  8. AMLOR [Concomitant]
  9. PROPOFAN [Concomitant]

REACTIONS (1)
  - HYPOGLYCAEMIA [None]
